FAERS Safety Report 18916304 (Version 1)
Quarter: 2021Q1

REPORT INFORMATION
  Report Type: Spontaneous
  Country: AU (occurrence: AU)
  Receive Date: 20210219
  Receipt Date: 20210219
  Transmission Date: 20210420
  Serious: Yes (Other)
  Sender: FDA-Public Use
  Company Number: AU-JNJFOC-20210226234

PATIENT

DRUGS (1)
  1. REMICADE [Suspect]
     Active Substance: INFLIXIMAB
     Indication: CARDIAC SARCOIDOSIS
     Dosage: 5 MG/KG OF INFLIXIMAB EVERY 4 TO 6 WEEKS
     Route: 042

REACTIONS (9)
  - Pulmonary embolism [Unknown]
  - Pneumonia [Unknown]
  - Herpes zoster [Unknown]
  - Drug ineffective [Unknown]
  - Off label use [Unknown]
  - Sepsis [Unknown]
  - Clostridium difficile colitis [Unknown]
  - Disseminated cryptococcosis [Unknown]
  - Product use in unapproved indication [Unknown]
